FAERS Safety Report 7018867-X (Version None)
Quarter: 2010Q3

REPORT INFORMATION
  Report Type: 
  Country: None (occurrence: None)
  Receive Date: 20100928
  Receipt Date: 20100916
  Transmission Date: 20110219
  Serious: Yes (Death, Other)
  Sender: FDA-Public Use
  Company Number: US-PFIZER INC-2010102006

PATIENT
  Sex: Male

DRUGS (1)
  1. REVATIO [Suspect]
     Indication: HYPERTENSION
     Dosage: 20 MG, 3X/DAY

REACTIONS (4)
  - CARDIAC FAILURE [None]
  - GASTRIC HAEMORRHAGE [None]
  - MICROANGIOPATHIC HAEMOLYTIC ANAEMIA [None]
  - RENAL FAILURE [None]
